FAERS Safety Report 7469309-1 (Version None)
Quarter: 2011Q2

REPORT INFORMATION
  Report Type: 
  Country: None (occurrence: None)
  Receive Date: 20110506
  Receipt Date: 20110506
  Transmission Date: 20111010
  Serious: Yes (Other)
  Sender: FDA-Public Use
  Company Number: None

PATIENT
  Sex: Male
  Weight: 79.5 kg

DRUGS (4)
  1. LEVETIRACETAM [Suspect]
     Indication: CONVULSION
     Dosage: 750MG BID PO ; 500MG BID PO
     Route: 048
     Dates: start: 20110301
  2. LEVETIRACETAM [Suspect]
     Indication: BRAIN NEOPLASM
     Dosage: 750MG BID PO ; 500MG BID PO
     Route: 048
     Dates: start: 20110301
  3. LEVETIRACETAM [Suspect]
     Indication: CONVULSION
     Dosage: 750MG BID PO ; 500MG BID PO
     Route: 048
     Dates: start: 20101111
  4. LEVETIRACETAM [Suspect]
     Indication: BRAIN NEOPLASM
     Dosage: 750MG BID PO ; 500MG BID PO
     Route: 048
     Dates: start: 20101111

REACTIONS (6)
  - PERONEAL NERVE PALSY [None]
  - FALL [None]
  - ASPARTATE AMINOTRANSFERASE INCREASED [None]
  - CONVULSION [None]
  - GAMMA-GLUTAMYLTRANSFERASE INCREASED [None]
  - ALANINE AMINOTRANSFERASE INCREASED [None]
